FAERS Safety Report 4828466-3 (Version None)
Quarter: 2005Q4

REPORT INFORMATION
  Report Type: 
  Country: None (occurrence: None)
  Receive Date: 20051014
  Receipt Date: 20050619
  Transmission Date: 20060501
  Serious: No
  Sender: FDA-Public Use
  Company Number: 2005SP001497

PATIENT
  Age: 57 Year
  Sex: Male
  Weight: 85.2762 kg

DRUGS (2)
  1. LUNESTA [Suspect]
     Dosage: 2 MG; HS; ORAL
     Route: 048
     Dates: start: 20050601
  2. MULTI-VITAMINS [Concomitant]

REACTIONS (3)
  - FATIGUE [None]
  - NERVOUSNESS [None]
  - PARADOXICAL DRUG REACTION [None]
